FAERS Safety Report 8993509 (Version 1)
Quarter: 2013Q1

REPORT INFORMATION
  Report Type: Report from Study
  Country: IN (occurrence: IN)
  Receive Date: 20130102
  Receipt Date: 20130102
  Transmission Date: 20140127
  Serious: Yes (Hospitalization)
  Sender: FDA-Public Use
  Company Number: IN-BRISTOL-MYERS SQUIBB COMPANY-15506645

PATIENT
  Age: 70 Year
  Sex: Male

DRUGS (3)
  1. DASATINIB [Suspect]
     Indication: PROSTATE CANCER
     Route: 048
     Dates: start: 20110101, end: 20110123
  2. DOCETAXEL [Suspect]
     Indication: PROSTATE CANCER
     Route: 042
     Dates: start: 20110101, end: 20110101
  3. PREDNISONE [Concomitant]
     Dates: start: 20110101

REACTIONS (2)
  - Viral infection [Recovered/Resolved]
  - Hyperglycaemia [Recovered/Resolved]
